FAERS Safety Report 23113681 (Version 1)
Quarter: 2023Q4

REPORT INFORMATION
  Report Type: Spontaneous
  Country: US (occurrence: US)
  Receive Date: 20231027
  Receipt Date: 20231027
  Transmission Date: 20240109
  Serious: Yes (Hospitalization)
  Sender: FDA-Public Use
  Company Number: US-002147023-NVSC2023US225475

PATIENT
  Sex: Female

DRUGS (1)
  1. VALSARTAN [Suspect]
     Active Substance: VALSARTAN
     Indication: Hypertension
     Dosage: 430 MG, QD (TWO PRESCRIPTIONS ONE FOR 420 MG AND ANOTHER FOR 10 MG)
     Route: 065

REACTIONS (4)
  - Swelling [Unknown]
  - Hypertension [Unknown]
  - Incorrect dose administered [Unknown]
  - Drug ineffective [Unknown]
